FAERS Safety Report 8869372 (Version 1)
Quarter: 2012Q4

REPORT INFORMATION
  Report Type: Spontaneous
  Country: US (occurrence: None)
  Receive Date: 20121025
  Receipt Date: 20121025
  Transmission Date: 20130627
  Serious: Yes (Disabling, Other)
  Sender: FDA-Public Use
  Company Number: None

PATIENT
  Age: 50 Year
  Sex: Male
  Weight: 102.06 kg

DRUGS (1)
  1. MEFLOQUINE HYDROCHLORIDE [Suspect]
     Indication: MALARIA PROPHYLAXIS
     Dosage: 1 pill
     Route: 048
     Dates: start: 20081117, end: 20090214

REACTIONS (10)
  - Insomnia [None]
  - Visual impairment [None]
  - Mood swings [None]
  - Apathy [None]
  - Anxiety [None]
  - Cardiac disorder [None]
  - Depression [None]
  - Weight decreased [None]
  - Amnesia [None]
  - Confusional state [None]
